FAERS Safety Report 8058983-7 (Version None)
Quarter: 2012Q1

REPORT INFORMATION
  Report Type: 
  Country: None (occurrence: None)
  Receive Date: 20120120
  Receipt Date: 20110121
  Transmission Date: 20120608
  Serious: No
  Sender: FDA-Public Use
  Company Number: US-BAUSCH-2011BL000510

PATIENT
  Age: 32 Year
  Sex: Male

DRUGS (1)
  1. TOBRAMYCIN [Suspect]
     Indication: EYE INFECTION BACTERIAL
     Route: 047
     Dates: start: 20110107, end: 20110119

REACTIONS (3)
  - VISION BLURRED [None]
  - HEADACHE [None]
  - EYE IRRITATION [None]
